FAERS Safety Report 6048569-8 (Version None)
Quarter: 2009Q1

REPORT INFORMATION
  Report Type: 
  Country: None (occurrence: None)
  Receive Date: 20090123
  Receipt Date: 20090116
  Transmission Date: 20090719
  Serious: Yes (Other)
  Sender: FDA-Public Use
  Company Number: IT-ASTRAZENECA-2008SE05342

PATIENT
  Age: 23328 Day
  Sex: Female

DRUGS (2)
  1. ARIMIDEX [Suspect]
     Indication: BREAST CANCER
     Route: 048
     Dates: start: 20080228, end: 20081110
  2. FASOMAX [Concomitant]
     Route: 048
     Dates: start: 20070101

REACTIONS (6)
  - BONE PAIN [None]
  - HYPERCHOLESTEROLAEMIA [None]
  - MEMORY IMPAIRMENT [None]
  - MUSCULOSKELETAL PAIN [None]
  - OSTEOARTHRITIS [None]
  - OSTEOPENIA [None]
